FAERS Safety Report 5386121-8 (Version None)
Quarter: 2007Q3

REPORT INFORMATION
  Report Type: 
  Country: None (occurrence: None)
  Receive Date: 20070711
  Receipt Date: 20070711
  Transmission Date: 20080115
  Serious: Yes (Life-Threatening, Hospitalization, Disabling)
  Sender: FDA-Public Use
  Company Number: None

PATIENT
  Age: 52 Year
  Sex: Male
  Weight: 74.8 kg

DRUGS (5)
  1. BEVACIZUMAB [Suspect]
     Indication: LUNG CANCER METASTATIC
     Dosage: 10 MG/KG Q2W IV
     Route: 042
     Dates: start: 20070401
  2. BEVACIZUMAB [Suspect]
     Indication: LUNG CANCER METASTATIC
     Dosage: 10 MG/KG Q2W IV
     Route: 042
     Dates: start: 20070501
  3. DOCETAXEL [Concomitant]
  4. PROTONIX [Concomitant]
  5. PREDNISONE [Concomitant]

REACTIONS (5)
  - ADRENAL DISORDER [None]
  - DISEASE RECURRENCE [None]
  - PNEUMONITIS [None]
  - RADIATION OESOPHAGITIS [None]
  - TRACHEO-OESOPHAGEAL FISTULA [None]
